FAERS Safety Report 8829672 (Version 1)
Quarter: 2012Q4

REPORT INFORMATION
  Report Type: 
  Country: US (occurrence: US)
  Receive Date: 20121008
  Receipt Date: 20121008
  Transmission Date: 20130627
  Serious: No
  Sender: FDA-Public Use
  Company Number: US-ASTRAZENECA-2012SE75833

PATIENT
  Age: 50 Year
  Sex: Male
  Weight: 90.7 kg

DRUGS (3)
  1. SYMBICORT [Suspect]
     Indication: BRONCHITIS
     Dosage: 2 PUFFS, BID
     Route: 055
     Dates: start: 2011, end: 20120921
  2. SYMBICORT [Suspect]
     Indication: BRONCHITIS
     Route: 055
  3. GANUMET [Concomitant]
     Indication: DIABETES MELLITUS

REACTIONS (4)
  - Diabetes mellitus [Unknown]
  - Weight decreased [Unknown]
  - Off label use [Unknown]
  - Drug dose omission [Unknown]
